FAERS Safety Report 11740455 (Version 2)
Quarter: 2015Q4

REPORT INFORMATION
  Report Type: Spontaneous
  Country: US (occurrence: US)
  Receive Date: 20151110
  Receipt Date: 20151120
  Transmission Date: 20160304
  Serious: No
  Sender: FDA-Public Use
  Company Number: US-ELI_LILLY_AND_COMPANY-US201205009701

PATIENT
  Age: 91 Year
  Sex: Male

DRUGS (2)
  1. FORTEO [Suspect]
     Active Substance: TERIPARATIDE
     Dosage: 20 UG, QD
  2. FORTEO [Suspect]
     Active Substance: TERIPARATIDE
     Indication: OSTEOPOROSIS
     Dosage: 20 UG, QD
     Route: 065
     Dates: start: 201111

REACTIONS (7)
  - Infection [Unknown]
  - Nasopharyngitis [Unknown]
  - Injection site pain [Unknown]
  - Intentional product misuse [Unknown]
  - Nausea [Unknown]
  - Fear [Unknown]
  - Vertigo [Unknown]

NARRATIVE: CASE EVENT DATE: 201203
